FAERS Safety Report 4871212-8 (Version None)
Quarter: 2006Q1

REPORT INFORMATION
  Report Type: 
  Country: None (occurrence: None)
  Receive Date: 20060103
  Receipt Date: 20000210
  Transmission Date: 20060701
  Serious: Yes (Hospitalization)
  Sender: FDA-Public Use
  Company Number: NZ-ABBOTT-00P-118-0087129-00

PATIENT
  Sex: Female

DRUGS (5)
  1. FENOFIBRATE [Suspect]
     Indication: HYPERLIPIDAEMIA
     Route: 048
     Dates: start: 19990208, end: 19990614
  2. FENOFIBRATE [Suspect]
     Route: 048
     Dates: start: 19990731
  3. ISOPHANE INSULIN [Concomitant]
     Indication: DRUG USE FOR UNKNOWN INDICATION
     Dates: start: 19800101
  4. QUINAPRIL [Concomitant]
     Indication: DRUG USE FOR UNKNOWN INDICATION
     Dates: start: 19980901, end: 19990901
  5. TIMPILO [Concomitant]
     Indication: DRUG USE FOR UNKNOWN INDICATION
     Dates: start: 19970101

REACTIONS (2)
  - DEEP VEIN THROMBOSIS [None]
  - GASTRITIS [None]
